FAERS Safety Report 11145109 (Version 4)
Quarter: 2015Q3

REPORT INFORMATION
  Report Type: Spontaneous
  Country: JP (occurrence: JP)
  Receive Date: 20150528
  Receipt Date: 20150804
  Transmission Date: 20151125
  Serious: Yes (Hospitalization, Congenital Anomaly)
  Sender: FDA-Public Use
  Company Number: JP-ASTELLAS-2015JP010854

PATIENT
  Age: 1 Day
  Sex: Female
  Weight: 3 kg

DRUGS (12)
  1. CALONAL [Concomitant]
     Active Substance: ACETAMINOPHEN
     Indication: FOETAL EXPOSURE DURING PREGNANCY
     Route: 064
     Dates: start: 20131211, end: 20140220
  2. MAGMITT [Concomitant]
     Active Substance: MAGNESIUM OXIDE
     Indication: FOETAL EXPOSURE DURING PREGNANCY
     Route: 064
     Dates: start: 20131227, end: 20140220
  3. TAKEPRON [Concomitant]
     Active Substance: LANSOPRAZOLE
     Indication: FOETAL EXPOSURE DURING PREGNANCY
     Route: 064
     Dates: start: 2013, end: 20140220
  4. MUCOSTA [Concomitant]
     Active Substance: REBAMIPIDE
     Indication: FOETAL EXPOSURE DURING PREGNANCY
     Route: 064
     Dates: end: 20130528
  5. BONALON [Concomitant]
     Active Substance: ALENDRONATE SODIUM
     Indication: FOETAL EXPOSURE DURING PREGNANCY
     Route: 064
     Dates: end: 20130629
  6. PREDNISOLONE. [Suspect]
     Active Substance: PREDNISOLONE
     Indication: FOETAL EXPOSURE DURING PREGNANCY
     Route: 064
     Dates: start: 200605, end: 20140220
  7. DUPHASTON [Concomitant]
     Active Substance: DYDROGESTERONE
     Indication: FOETAL EXPOSURE DURING PREGNANCY
     Route: 064
     Dates: start: 20130708, end: 20130803
  8. UTEMERIN [Concomitant]
     Active Substance: RITODRINE
     Indication: FOETAL EXPOSURE DURING PREGNANCY
     Route: 064
     Dates: start: 20131221, end: 20140220
  9. MYSLEE [Suspect]
     Active Substance: ZOLPIDEM TARTRATE
     Indication: FOETAL EXPOSURE DURING PREGNANCY
     Route: 064
     Dates: start: 20130804, end: 20140220
  10. DACTIL [Concomitant]
     Indication: FOETAL EXPOSURE DURING PREGNANCY
     Route: 064
     Dates: start: 20130804, end: 20130818
  11. PROGRAF [Suspect]
     Active Substance: TACROLIMUS\TACROLIMUS ANHYDROUS
     Indication: FOETAL EXPOSURE DURING PREGNANCY
     Route: 064
     Dates: start: 2013, end: 20140220
  12. FERROMIA [Concomitant]
     Active Substance: FERROUS CITRATE
     Indication: FOETAL EXPOSURE DURING PREGNANCY
     Route: 064
     Dates: start: 20131202, end: 20140220

REACTIONS (1)
  - Jaundice neonatal [Recovering/Resolving]

NARRATIVE: CASE EVENT DATE: 20140222
